FAERS Safety Report 6377609-1 (Version None)
Quarter: 2009Q3

REPORT INFORMATION
  Report Type: 
  Country: None (occurrence: None)
  Receive Date: 20090925
  Receipt Date: 20090922
  Transmission Date: 20100115
  Serious: Yes (Hospitalization)
  Sender: FDA-Public Use
  Company Number: JP-BRISTOL-MYERS SQUIBB COMPANY-14789424

PATIENT
  Age: 68 Year
  Sex: Male
  Weight: 53 kg

DRUGS (20)
  1. CISPLATIN [Suspect]
     Indication: NON-SMALL CELL LUNG CANCER
     Dosage: 17JUN09-17JUN09(1DAY);67.5MG(10JUL-31JUL09(22 DAYS).
     Route: 042
     Dates: start: 20090617
  2. ALIMTA [Suspect]
     Indication: NON-SMALL CELL LUNG CANCER
     Dosage: 17JUN-31JUL09(45 DAYS).
     Route: 042
     Dates: start: 20090617
  3. AG-013736 [Suspect]
     Indication: NON-SMALL CELL LUNG CANCER
     Route: 048
     Dates: start: 20090617, end: 20090809
  4. OXYCONTIN [Concomitant]
     Dosage: TABLET;
     Dates: start: 20090513, end: 20090807
  5. OPSO [Concomitant]
     Dosage: SOLUTION
     Dates: start: 20090521
  6. COBALAMIN [Concomitant]
     Dosage: INJECTION
     Dates: start: 20090529
  7. PANVITAN [Concomitant]
     Dosage: POWDER
     Dates: start: 20090529
  8. CALONAL [Concomitant]
     Dates: start: 20090612
  9. GABAPEN [Concomitant]
     Dosage: TABLET
     Dates: start: 20090622
  10. THYRADIN S [Concomitant]
     Dates: start: 20090708
  11. MAGLAX [Concomitant]
     Dosage: TABLET
     Dates: start: 20090716
  12. PRIMPERAN [Concomitant]
     Dates: start: 20090718
  13. ATARAX [Concomitant]
  14. SENNOSIDE [Concomitant]
     Dates: start: 20090720
  15. MONILAC [Concomitant]
  16. GAMOFA [Concomitant]
     Dosage: TABLET
     Dates: start: 20090731
  17. ZOFRAN [Concomitant]
     Dosage: TABLET
     Dates: start: 20090801
  18. DUROTEP [Concomitant]
     Dosage: TAPE
     Dates: start: 20090807
  19. BUSCOPAN [Concomitant]
     Dosage: INJECTION;TAKEN AS TABLET ON 09AUG09.
     Dates: start: 20090809
  20. HACHIAZULE [Concomitant]
     Dates: start: 20090809

REACTIONS (4)
  - ENTERITIS [None]
  - PNEUMONIA [None]
  - PNEUMONIA BACTERIAL [None]
  - SMALL INTESTINE ULCER [None]
